FAERS Safety Report 25656254 (Version 1)
Quarter: 2025Q3

REPORT INFORMATION
  Report Type: Report from Study
  Country: BR (occurrence: BR)
  Receive Date: 20250807
  Receipt Date: 20250807
  Transmission Date: 20251020
  Serious: Yes (Other)
  Sender: ALEXION PHARMACEUTICALS
  Company Number: BR-ALXN-A202103066

PATIENT
  Sex: Female

DRUGS (2)
  1. SOLIRIS [Suspect]
     Active Substance: ECULIZUMAB
     Indication: Paroxysmal nocturnal haemoglobinuria
     Dosage: 600 MG, QW
     Dates: start: 20200825, end: 20200908
  2. SOLIRIS [Suspect]
     Active Substance: ECULIZUMAB
     Dates: start: 20200825, end: 20200908

REACTIONS (4)
  - Large intestinal ulcer [Unknown]
  - Thrombosis [Unknown]
  - Muscle necrosis [Unknown]
  - Paroxysmal nocturnal haemoglobinuria [Unknown]
